FAERS Safety Report 18006426 (Version 1)
Quarter: 2020Q3

REPORT INFORMATION
  Report Type: Spontaneous
  Country: US (occurrence: US)
  Receive Date: 20200710
  Receipt Date: 20200710
  Transmission Date: 20201103
  Serious: Yes (Hospitalization)
  Sender: FDA-Public Use
  Company Number: None

PATIENT
  Age: 64 Year
  Sex: Female
  Weight: 77 kg

DRUGS (3)
  1. CARBOPLATIN. [Concomitant]
     Active Substance: CARBOPLATIN
     Dates: end: 20200204
  2. MEDI4736 (DURVALUMAB) [Suspect]
     Active Substance: DURVALUMAB
     Dates: end: 20200326
  3. PACLITAXOL (TAXOL) [Concomitant]
     Dates: end: 20200204

REACTIONS (1)
  - Dyspnoea [None]

NARRATIVE: CASE EVENT DATE: 20200423
